FAERS Safety Report 19562582 (Version 1)
Quarter: 2021Q3

REPORT INFORMATION
  Report Type: Spontaneous
  Country: JP (occurrence: JP)
  Receive Date: 20210716
  Receipt Date: 20210716
  Transmission Date: 20211014
  Serious: Yes (Other)
  Sender: FDA-Public Use
  Company Number: NVSJ2021JP010687

PATIENT
  Age: 92 Year
  Sex: Male

DRUGS (1)
  1. RIFAMPICIN CAPSULES [Suspect]
     Active Substance: RIFAMPIN
     Indication: TUBERCULOSIS
     Route: 048

REACTIONS (3)
  - Vomiting [Unknown]
  - Diabetes mellitus [Unknown]
  - Nausea [Unknown]
